FAERS Safety Report 8360608-8 (Version None)
Quarter: 2012Q2

REPORT INFORMATION
  Report Type: 
  Country: None (occurrence: None)
  Receive Date: 20120514
  Receipt Date: 20120514
  Transmission Date: 20120825
  Serious: Yes (Disabling)
  Sender: FDA-Public Use
  Company Number: None

PATIENT
  Sex: Female
  Weight: 70.3075 kg

DRUGS (1)
  1. BONIVA [Suspect]
     Indication: OSTEOPOROSIS
     Dosage: 1 PILL 1 X MO MOUTH
     Route: 048
     Dates: start: 20080101

REACTIONS (3)
  - MUSCLE SPASMS [None]
  - GAIT DISTURBANCE [None]
  - PAIN IN JAW [None]
